FAERS Safety Report 9704562 (Version 1)
Quarter: 2013Q4

REPORT INFORMATION
  Report Type: Spontaneous
  Country: US (occurrence: US)
  Receive Date: 20131122
  Receipt Date: 20131122
  Transmission Date: 20140711
  Serious: No
  Sender: FDA-Public Use
  Company Number: US-TEVA-445474USA

PATIENT
  Sex: Female

DRUGS (2)
  1. COPAXONE [Suspect]
     Dates: start: 201202
  2. BETASERON [Suspect]
     Dates: start: 201112, end: 201203

REACTIONS (1)
  - Drug hypersensitivity [Unknown]
